FAERS Safety Report 7040518-9 (Version None)
Quarter: 2010Q4

REPORT INFORMATION
  Report Type: 
  Country: None (occurrence: None)
  Receive Date: 20101008
  Receipt Date: 20101008
  Transmission Date: 20110411
  Serious: No
  Sender: FDA-Public Use
  Company Number: None

PATIENT
  Age: 53 Year
  Sex: Male
  Weight: 92.9874 kg

DRUGS (2)
  1. SAGE 2% CHLORHEXIDINE GLUCONATE CLOTH [Suspect]
     Indication: KNEE ARTHROPLASTY
     Dosage: PRE OP SKIN WASH TO LEFT LOWER LEG
     Route: 061
     Dates: start: 20100831
  2. PREVAIL ONE STEP TOPICAL PRE OP SCRUB [Concomitant]

REACTIONS (1)
  - BLISTER [None]
